FAERS Safety Report 6647217-3 (Version None)
Quarter: 2010Q1

REPORT INFORMATION
  Report Type: 
  Country: None (occurrence: None)
  Receive Date: 20100323
  Receipt Date: 20100316
  Transmission Date: 20100710
  Serious: Yes (Hospitalization)
  Sender: FDA-Public Use
  Company Number: A0815828A

PATIENT
  Age: 77 Year
  Sex: Male
  Weight: 77.7 kg

DRUGS (6)
  1. AVANDIA [Suspect]
     Dosage: 4MG PER DAY
     Route: 048
     Dates: end: 20070501
  2. GLUCOTROL [Concomitant]
  3. ATENOLOL [Concomitant]
  4. LIPITOR [Concomitant]
  5. DIOVAN [Concomitant]
  6. ALDACTONE [Concomitant]

REACTIONS (6)
  - ASTHENIA [None]
  - ATRIAL FIBRILLATION [None]
  - CORONARY ARTERY DISEASE [None]
  - DYSPNOEA [None]
  - EMOTIONAL DISTRESS [None]
  - GAIT DISTURBANCE [None]
